FAERS Safety Report 4269422-6 (Version None)
Quarter: 2004Q1

REPORT INFORMATION
  Report Type: 
  Country: None (occurrence: None)
  Receive Date: 20040108
  Receipt Date: 20031223
  Transmission Date: 20041129
  Serious: Yes (Other)
  Sender: FDA-Public Use
  Company Number: STA-AE-03-MTX-217

PATIENT
  Age: 69 Year
  Sex: Female

DRUGS (2)
  1. METHOTREXATE [Suspect]
     Indication: CARDIAC SARCOIDOSIS
     Dosage: 7.5 MG 1X PER 1 WK
     Dates: start: 20001013, end: 20001201
  2. PREDNISOLONE [Concomitant]

REACTIONS (6)
  - APLASTIC ANAEMIA [None]
  - DISSEMINATED INTRAVASCULAR COAGULATION [None]
  - MULTI-ORGAN FAILURE [None]
  - PANCYTOPENIA [None]
  - PLATELET COUNT INCREASED [None]
  - PNEUMONIA [None]
